FAERS Safety Report 9253874 (Version 7)
Quarter: 2013Q4

REPORT INFORMATION
  Report Type: Report from Study
  Country: CA (occurrence: CA)
  Receive Date: 20130425
  Receipt Date: 20131017
  Transmission Date: 20140711
  Serious: Yes (Other)
  Sender: FDA-Public Use
  Company Number: CA-ROCHE-1218148

PATIENT
  Age: 54 Year
  Sex: Male
  Weight: 82 kg

DRUGS (13)
  1. ACTEMRA [Suspect]
     Indication: RHEUMATOID ARTHRITIS
     Dosage: MOST RECENT DOSE ON 25/JUN/2013
     Route: 042
     Dates: start: 20130325, end: 20130625
  2. METHOTREXATE [Concomitant]
  3. PLAQUENIL [Concomitant]
  4. FOLIC ACID [Concomitant]
  5. DICLOFENAC [Concomitant]
  6. LIPITOR [Concomitant]
  7. PANTOLOC [Concomitant]
  8. CIALIS [Concomitant]
  9. ACETAMINOPHEN [Concomitant]
  10. ATORVASTATIN [Concomitant]
  11. COVERSYL [Concomitant]
  12. SALBUTAMOL [Concomitant]
  13. VITAMIN B12 [Concomitant]

REACTIONS (7)
  - Osteoporosis [Recovering/Resolving]
  - Bone disorder [Unknown]
  - Hypertension [Not Recovered/Not Resolved]
  - Drug ineffective [Unknown]
  - Arthralgia [Recovering/Resolving]
  - Heart rate increased [Not Recovered/Not Resolved]
  - Wound [Recovering/Resolving]
